FAERS Safety Report 8389711-3 (Version None)
Quarter: 2012Q2

REPORT INFORMATION
  Report Type: 
  Country: None (occurrence: None)
  Receive Date: 20120523
  Receipt Date: 20120523
  Transmission Date: 20120825
  Serious: Yes (Other)
  Sender: FDA-Public Use
  Company Number: None

PATIENT

DRUGS (1)
  1. LEVOTHYROXINE SODIUM [Suspect]
     Dosage: L-THYROXINE 1 EVERY MORNING 0.5MG 11-08-12

REACTIONS (2)
  - ALOPECIA [None]
  - PRODUCT SUBSTITUTION ISSUE [None]
